FAERS Safety Report 19534317 (Version 1)
Quarter: 2021Q3

REPORT INFORMATION
  Report Type: Spontaneous
  Country: DE (occurrence: DE)
  Receive Date: 20210713
  Receipt Date: 20210713
  Transmission Date: 20211014
  Serious: Yes (Hospitalization)
  Sender: FDA-Public Use
  Company Number: DE-VALIDUS PHARMACEUTICALS LLC-VDP-2021-000087

PATIENT
  Age: 88 Year
  Sex: Female

DRUGS (9)
  1. XIPAMID [Suspect]
     Active Substance: XIPAMIDE
     Dosage: 10 MILLIGRAM 1?1?0?0, TABLETS
     Route: 048
  2. APIXABAN [Concomitant]
     Active Substance: APIXABAN
     Dosage: UNK
     Route: 065
  3. LEVOTHYROXIN [Concomitant]
     Active Substance: LEVOTHYROXINE
     Dosage: UNK
     Route: 065
  4. MAGNESIUM CLOFIBRATE [Concomitant]
     Dosage: UNK
  5. FUROSEMIDE. [Suspect]
     Active Substance: FUROSEMIDE
     Dosage: 40 MILLIGRAM 1?0.5?0?0, TABLETS
     Route: 048
  6. PREGABALIN. [Concomitant]
     Active Substance: PREGABALIN
     Dosage: UNK
     Route: 065
  7. LEGANTO [Concomitant]
     Active Substance: ROTIGOTINE
     Dosage: UNK
     Route: 065
  8. VERAMEX [Concomitant]
     Active Substance: VERAPAMIL HYDROCHLORIDE
     Dosage: UNK
     Route: 065
  9. KALINORM [Concomitant]
     Dosage: UNK
     Route: 065

REACTIONS (3)
  - Electrolyte imbalance [Unknown]
  - Oedema peripheral [Unknown]
  - Dizziness [Unknown]
